FAERS Safety Report 8445497-5 (Version None)
Quarter: 2012Q2

REPORT INFORMATION
  Report Type: 
  Country: None (occurrence: None)
  Receive Date: 20120323
  Receipt Date: 20111027
  Transmission Date: 20120825
  Serious: Yes (Other)
  Sender: FDA-Public Use
  Company Number: 163-21880-11103418

PATIENT
  Age: 58 Year
  Sex: Male
  Weight: 90.7194 kg

DRUGS (8)
  1. DECADRON [Concomitant]
  2. ZOLOFT [Concomitant]
  3. ASPIRIN [Concomitant]
  4. AMBIEN [Concomitant]
  5. MULTI-VITAMINS [Concomitant]
  6. REVLIMID [Suspect]
     Indication: MULTIPLE MYELOMA
     Dosage: 25 MG, X 21 DAYS, PO
     Route: 048
     Dates: start: 20110601
  7. COUMADIN [Concomitant]
  8. XANAX [Concomitant]

REACTIONS (2)
  - FATIGUE [None]
  - THROMBOSIS [None]
